FAERS Safety Report 23687321 (Version 4)
Quarter: 2024Q2

REPORT INFORMATION
  Report Type: Spontaneous
  Country: US (occurrence: US)
  Receive Date: 20240329
  Receipt Date: 20240430
  Transmission Date: 20240715
  Serious: Yes (Life-Threatening, Other)
  Sender: FDA-Public Use
  Company Number: US-PFIZER INC-202400073931

PATIENT
  Age: 78 Year
  Sex: Male

DRUGS (3)
  1. HEPARIN SODIUM [Suspect]
     Active Substance: HEPARIN SODIUM
     Dosage: UNK
  2. FUROSEMIDE [Concomitant]
     Active Substance: FUROSEMIDE
     Indication: Human anaplasmosis
     Dosage: UNK
  3. AMIODARONE [Concomitant]
     Active Substance: AMIODARONE
     Indication: Human anaplasmosis
     Dosage: UNK

REACTIONS (1)
  - Heparin-induced thrombocytopenia [Unknown]
